FAERS Safety Report 5370425-9 (Version None)
Quarter: 2007Q2

REPORT INFORMATION
  Report Type: 
  Country: None (occurrence: None)
  Receive Date: 20070625
  Receipt Date: 20070625
  Transmission Date: 20071010
  Serious: Yes (Life-Threatening)
  Sender: FDA-Public Use
  Company Number: None

PATIENT
  Age: 22 Year
  Sex: Male
  Weight: 72.5755 kg

DRUGS (1)
  1. CHANTIX [Suspect]
     Indication: SMOKING CESSATION THERAPY
     Dosage: DAY 1-3 0.5MG OD PO DAY 4-7 0.5 MG 2X DAY PO DAY 8-28 1MG 2X DAY PO
     Route: 048
     Dates: start: 20070315

REACTIONS (1)
  - HAEMOLYTIC ANAEMIA [None]
